FAERS Safety Report 8900021 (Version 3)
Quarter: 2013Q1

REPORT INFORMATION
  Report Type: Spontaneous
  Country: BR (occurrence: BR)
  Receive Date: 20121109
  Receipt Date: 20130117
  Transmission Date: 20140127
  Serious: Yes (Other)
  Sender: FDA-Public Use
  Company Number: PHHY2012BR102176

PATIENT
  Sex: Female
  Weight: 54 kg

DRUGS (10)
  1. EXJADE [Suspect]
     Indication: IRON OVERLOAD
     Dosage: UNK UKN, UNK
     Dates: start: 2005
  2. EXJADE [Suspect]
     Indication: SICKLE CELL ANAEMIA
     Dosage: 500 MG, UNK
     Dates: start: 201112, end: 201208
  3. EXJADE [Suspect]
     Dosage: 2 DF, DAILY
     Route: 048
  4. ENDOFOLIN [Concomitant]
     Dosage: 2 DF, DAILY
     Route: 048
     Dates: start: 19920101
  5. ATENOLOL [Concomitant]
     Dosage: 2 DF, DAILY
     Route: 048
     Dates: start: 20111212
  6. HYDREA [Concomitant]
     Dosage: UNK UKN, UNK
     Dates: start: 2005
  7. FOLIC ACID [Concomitant]
     Dosage: UNK UKN, UNK
     Dates: start: 1992
  8. CLORANA [Concomitant]
     Dosage: 2 DF, DAILY
     Route: 048
     Dates: start: 2002
  9. ATENOLOL W/NIFEDIPINE [Concomitant]
     Dosage: UNK UKN, UNK
  10. AAS [Concomitant]
     Dosage: UNK UKN, UNK
     Dates: start: 2012

REACTIONS (11)
  - Musculoskeletal discomfort [Unknown]
  - Limb discomfort [Unknown]
  - Osteonecrosis [Recovering/Resolving]
  - Nail discolouration [Not Recovered/Not Resolved]
  - Skin discolouration [Recovering/Resolving]
  - Hypertension [Recovering/Resolving]
  - Weight increased [Unknown]
  - Blood iron increased [Unknown]
  - Diarrhoea [Recovered/Resolved]
  - Vomiting [Recovered/Resolved]
  - Pyrexia [Recovered/Resolved]
